FAERS Safety Report 6706733-6 (Version None)
Quarter: 2010Q2

REPORT INFORMATION
  Report Type: 
  Country: None (occurrence: None)
  Receive Date: 20100428
  Receipt Date: 20100412
  Transmission Date: 20101027
  Serious: Yes (Death, Hospitalization)
  Sender: FDA-Public Use
  Company Number: A-NJ2010-35591

PATIENT
  Age: 55 Year
  Sex: Female

DRUGS (22)
  1. VENTAVIS [Suspect]
     Indication: PULMONARY ARTERIAL HYPERTENSION
     Dosage: 5 UG, Q2HRS, RESPIRATORY, 5 UG, Q2HRS, RESPIRATORY
     Route: 055
     Dates: start: 20090601, end: 20091130
  2. VENTAVIS [Suspect]
     Indication: PULMONARY ARTERIAL HYPERTENSION
     Dosage: 5 UG, Q2HRS, RESPIRATORY, 5 UG, Q2HRS, RESPIRATORY
     Route: 055
     Dates: start: 20091201, end: 20100402
  3. CORTICOSTEROIDS [Suspect]
  4. FLOLAN [Concomitant]
  5. REVATIO [Concomitant]
  6. ACYCLOVIR [Concomitant]
  7. CALCIUM W/VITAMIN D (CALCIUM CARBONATE, COLECALCIFEROL) [Concomitant]
  8. CELEXA [Concomitant]
  9. COLACE (DOCUSATE SODIUM) [Concomitant]
  10. PEPCID [Concomitant]
  11. ANALPRAM HC (HYDROCORTISONE ACETATE, PRAMOCAINE HYDROCHLORIDE) [Concomitant]
  12. NOVOLOG [Concomitant]
  13. ATIVAN [Concomitant]
  14. METOPROLOL (METOPROLOL) [Concomitant]
  15. MULTIVITAMIN [Concomitant]
  16. MYCOPHENOLATE MOFETIL [Concomitant]
  17. NYSTATIN [Concomitant]
  18. OXYCONTIN [Concomitant]
  19. PREDNISONE TAB [Concomitant]
  20. SEROQUEL [Concomitant]
  21. BACTRIM [Concomitant]
  22. TACROLIMUS [Concomitant]

REACTIONS (17)
  - ACUTE RIGHT VENTRICULAR FAILURE [None]
  - ANXIETY [None]
  - ARTERIOSCLEROSIS CORONARY ARTERY [None]
  - BRADYPNOEA [None]
  - CARDIAC ARREST [None]
  - CHRONIC HEPATIC FAILURE [None]
  - CYANOSIS [None]
  - DELIRIUM [None]
  - FALL [None]
  - HYPOTENSION [None]
  - LIVER TRANSPLANT [None]
  - OBSESSIVE-COMPULSIVE DISORDER [None]
  - PULMONARY ARTERIAL PRESSURE INCREASED [None]
  - PULMONARY HYPERTENSION [None]
  - PULSE ABSENT [None]
  - TACHYCARDIA [None]
  - VENTRICULAR HYPERTROPHY [None]
